FAERS Safety Report 7237596-0 (Version None)
Quarter: 2011Q1

REPORT INFORMATION
  Report Type: 
  Country: None (occurrence: None)
  Receive Date: 20110112
  Receipt Date: 20100922
  Transmission Date: 20110831
  Serious: Yes (Hospitalization)
  Sender: FDA-Public Use
  Company Number: BE-021107

PATIENT
  Age: 73 Year
  Sex: Female

DRUGS (12)
  1. (CHLORAMBUCIL) [Suspect]
     Indication: CHRONIC LYMPHOCYTIC LEUKAEMIA
     Dosage: 40 MG 40 MG QD
     Dates: start: 20100706, end: 20100908
  2. ACETYLCYSTEINE [Concomitant]
  3. POVIDONE IODINE [Concomitant]
  4. (DOMPERIDONE) [Concomitant]
  5. (COLECALCIFEROL) [Concomitant]
  6. (AMLODIOPINE) [Concomitant]
  7. (OTHERS) [Concomitant]
  8. (ACICLOVIR) [Concomitant]
  9. LEVOCETIRIZINE DIHYDROCHLORIDE [Concomitant]
  10. EPOGEN [Concomitant]
  11. MOXIFLOXACIN [Concomitant]
  12. FLOXACILLIN SODIUM [Concomitant]

REACTIONS (5)
  - RIB FRACTURE [None]
  - KERATITIS [None]
  - BLISTER [None]
  - PHLEBITIS [None]
  - FLANK PAIN [None]
